FAERS Safety Report 15009125 (Version 2)
Quarter: 2018Q2

REPORT INFORMATION
  Report Type: Report from Study
  Country: JP (occurrence: JP)
  Receive Date: 20180614
  Receipt Date: 20180629
  Transmission Date: 20180711
  Serious: Yes (Hospitalization, Other)
  Sender: FDA-Public Use
  Company Number: JP-ROCHE-2137415

PATIENT

DRUGS (2)
  1. MIZORIBINE [Concomitant]
     Active Substance: MIZORIBINE
     Route: 048
  2. RITUXIMAB. [Suspect]
     Active Substance: RITUXIMAB
     Indication: NEPHROTIC SYNDROME
     Dosage: ONE TIME DOSE
     Route: 041

REACTIONS (6)
  - Mycoplasma infection [Unknown]
  - Agranulocytosis [Unknown]
  - Infusion related reaction [Unknown]
  - Infection [Unknown]
  - Neutropenia [Unknown]
  - Electrocardiogram abnormal [Unknown]
